FAERS Safety Report 6516456-4 (Version None)
Quarter: 2009Q4

REPORT INFORMATION
  Report Type: 
  Country: None (occurrence: None)
  Receive Date: 20091223
  Receipt Date: 20091222
  Transmission Date: 20100525
  Serious: Yes (Other)
  Sender: FDA-Public Use
  Company Number: US-WYE-H12751709

PATIENT
  Age: 75 Year
  Sex: Male

DRUGS (2)
  1. TORISEL [Suspect]
     Indication: MANTLE CELL LYMPHOMA
     Dosage: 25 MG DAYS 1, 8, 15, 22
     Route: 042
     Dates: start: 20080912, end: 20090818
  2. RITUXIMAB [Concomitant]
     Indication: MANTLE CELL LYMPHOMA
     Dosage: 375 MG/M^2 DAYS 1,8, 15, 22
     Route: 042
     Dates: start: 20080912, end: 20090818

REACTIONS (1)
  - TESTICULAR ATROPHY [None]
